FAERS Safety Report 9438088 (Version 1)
Quarter: 2013Q3

REPORT INFORMATION
  Report Type: Spontaneous
  Country: US (occurrence: US)
  Receive Date: 20130802
  Receipt Date: 20130802
  Transmission Date: 20140515
  Serious: No
  Sender: FDA-Public Use
  Company Number: US-BRISTOL-MYERS SQUIBB COMPANY-16873929

PATIENT
  Age: 82 Year
  Sex: Male
  Weight: 66.21 kg

DRUGS (2)
  1. COUMADIN TABS [Suspect]
     Dosage: INITIALLY 2 MG AND 4MG AND INCREASED TO 5MG
     Dates: start: 201205
  2. OLIVE OIL [Suspect]

REACTIONS (1)
  - International normalised ratio decreased [Recovered/Resolved]
